FAERS Safety Report 21188369 (Version 9)
Quarter: 2022Q4

REPORT INFORMATION
  Report Type: Other
  Country: CA (occurrence: None)
  Receive Date: 20220809
  Receipt Date: 20221026
  Transmission Date: 20230112
  Serious: Yes (Other)
  Sender: FDA-Public Use
  Company Number: CA-ROCHE-3122861

PATIENT
  Age: 58 Year
  Sex: Female

DRUGS (1)
  1. OCREVUS [Suspect]
     Active Substance: OCRELIZUMAB
     Indication: Relapsing-remitting multiple sclerosis
     Dosage: 300 MG AT DAY 0 AND DAY 14, THEN 600 MG EVERY 6 MONTH
     Route: 042
     Dates: start: 20210531

REACTIONS (9)
  - Ankle fracture [Recovering/Resolving]
  - Spinal compression fracture [Recovering/Resolving]
  - Ligament sprain [Recovering/Resolving]
  - Balance disorder [Not Recovered/Not Resolved]
  - Fall [Unknown]
  - Postoperative wound infection [Not Recovered/Not Resolved]
  - Tremor [Unknown]
  - Cystitis [Not Recovered/Not Resolved]
  - Poor quality sleep [Not Recovered/Not Resolved]

NARRATIVE: CASE EVENT DATE: 20221003
